FAERS Safety Report 20718147 (Version 3)
Quarter: 2022Q2

REPORT INFORMATION
  Report Type: Report from Study
  Country: BG (occurrence: BG)
  Receive Date: 20220418
  Receipt Date: 20220502
  Transmission Date: 20220721
  Serious: Yes (Death, Hospitalization, Other)
  Sender: FDA-Public Use
  Company Number: BG-ABBVIE-22K-022-4356475-00

PATIENT
  Age: 79 Year
  Sex: Male

DRUGS (2)
  1. CARBIDOPA\LEVODOPA [Suspect]
     Active Substance: CARBIDOPA\LEVODOPA
     Indication: Parkinson^s disease
     Dosage: MD-5.5 ML CR-2.5 ML/H ED-1.0 ML
     Route: 050
     Dates: start: 20160126, end: 20220428
  2. CARBIDOPA\LEVODOPA [Suspect]
     Active Substance: CARBIDOPA\LEVODOPA

REACTIONS (8)
  - Cardiac failure [Fatal]
  - Respiratory failure [Fatal]
  - Sepsis [Fatal]
  - Sinus bradycardia [Not Recovered/Not Resolved]
  - Presyncope [Unknown]
  - Dyspnoea [Unknown]
  - Hypotension [Unknown]
  - Unevaluable event [Unknown]

NARRATIVE: CASE EVENT DATE: 20220325
